FAERS Safety Report 5188407-9 (Version None)
Quarter: 2006Q4

REPORT INFORMATION
  Report Type: 
  Country: None (occurrence: None)
  Receive Date: 20061221
  Receipt Date: 20060804
  Transmission Date: 20070319
  Serious: Yes (Other)
  Sender: FDA-Public Use
  Company Number: US-SHR-US-2006-022056

PATIENT
  Age: 53 Year
  Sex: Female
  Weight: 77 kg

DRUGS (5)
  1. BETASERON [Suspect]
     Indication: RELAPSING-REMITTING MULTIPLE SCLEROSIS
     Dosage: 8 MIU, EVERY 2D
     Route: 058
     Dates: start: 20030122, end: 20060630
  2. BETASERON [Suspect]
     Dosage: UNK, UNK
     Route: 058
     Dates: start: 20060721, end: 20060731
  3. BETASERON [Suspect]
     Dosage: 8 MIU, EVERY 2D
     Route: 058
     Dates: start: 20060805, end: 20060920
  4. VOLTAREN [Concomitant]
     Dosage: 75 MG, AS REQ'D
     Route: 048
  5. MULTIVIT [Concomitant]

REACTIONS (12)
  - CONTUSION [None]
  - CONVULSION [None]
  - DIZZINESS [None]
  - FACE INJURY [None]
  - FACIAL PAIN [None]
  - FALL [None]
  - FEELING ABNORMAL [None]
  - LOSS OF CONSCIOUSNESS [None]
  - NAUSEA [None]
  - PARAESTHESIA [None]
  - SYNCOPE [None]
  - TOOTH FRACTURE [None]
